FAERS Safety Report 15301228 (Version 5)
Quarter: 2018Q4

REPORT INFORMATION
  Report Type: Spontaneous
  Country: GR (occurrence: GR)
  Receive Date: 20180821
  Receipt Date: 20181015
  Transmission Date: 20190204
  Serious: Yes (Hospitalization, Other)
  Sender: FDA-Public Use
  Company Number: GR-PFIZER INC-2018328819

PATIENT
  Age: 77 Year
  Sex: Male

DRUGS (3)
  1. OXCARBAZEPINE. [Suspect]
     Active Substance: OXCARBAZEPINE
     Indication: EPILEPSY
     Dosage: UNK
  2. SODIUM VALPROATE [Suspect]
     Active Substance: VALPROATE SODIUM
     Indication: EPILEPSY
     Dosage: UNK
  3. LEVETIRACETAM. [Suspect]
     Active Substance: LEVETIRACETAM
     Indication: EPILEPSY
     Dosage: UNK

REACTIONS (7)
  - Limbic encephalitis [Unknown]
  - Confusional state [Recovering/Resolving]
  - Partial seizures [Recovering/Resolving]
  - Bradyarrhythmia [Recovering/Resolving]
  - Hallucinations, mixed [Recovered/Resolved]
  - Memory impairment [Recovering/Resolving]
  - Muscle contractions involuntary [Recovering/Resolving]
